FAERS Safety Report 12824653 (Version 1)
Quarter: 2016Q4

REPORT INFORMATION
  Report Type: Spontaneous
  Country: FR (occurrence: FR)
  Receive Date: 20161007
  Receipt Date: 20161007
  Transmission Date: 20170207
  Serious: Yes (Hospitalization)
  Sender: FDA-Public Use
  Company Number: FR-FRESENIUS KABI-FK201607475

PATIENT
  Age: 68 Year
  Sex: Male

DRUGS (9)
  1. MAGNESIUM SULFATE RENAUDI [Suspect]
     Active Substance: MAGNESIUM SULFATE
     Indication: COLON CANCER
     Route: 042
     Dates: start: 20160906, end: 20160906
  2. IRINOTECAN 20 MG/ML CONCENTRATE FOR SOLUTION FOR INFUSION [Suspect]
     Active Substance: IRINOTECAN
     Indication: COLON CANCER
     Route: 042
     Dates: start: 20160906, end: 20160906
  3. FOLINATE DE CALCIUM ZENTIVA [Suspect]
     Active Substance: LEUCOVORIN CALCIUM
     Indication: COLON CANCER
     Route: 042
     Dates: start: 20160906, end: 20160906
  4. ZOPHREN [Concomitant]
     Active Substance: ONDANSETRON
     Indication: PRODUCT USED FOR UNKNOWN INDICATION
     Route: 042
  5. METHYLPREDNISOLONE. [Concomitant]
     Active Substance: METHYLPREDNISOLONE
     Indication: PRODUCT USED FOR UNKNOWN INDICATION
     Route: 042
  6. AVASTIN [Concomitant]
     Active Substance: BEVACIZUMAB
     Indication: PRODUCT USED FOR UNKNOWN INDICATION
     Route: 042
  7. ATROPINE SULFATE RENAUDIN [Suspect]
     Active Substance: ATROPINE SULFATE
     Indication: COLON CANCER
     Route: 042
     Dates: start: 20160906, end: 20160906
  8. ELOXATIN [Suspect]
     Active Substance: OXALIPLATIN
     Indication: COLON CANCER
     Route: 042
     Dates: start: 20160906, end: 20160906
  9. CALCIUM GLUCONATE AGUETTANT [Suspect]
     Active Substance: CALCIUM GLUCONATE
     Indication: COLON CANCER
     Route: 042
     Dates: start: 20160906, end: 20160906

REACTIONS (4)
  - Blood pressure increased [Recovered/Resolved]
  - Pyrexia [Recovered/Resolved]
  - Tremor [Recovered/Resolved]
  - Discomfort [Recovered/Resolved]

NARRATIVE: CASE EVENT DATE: 20160906
